FAERS Safety Report 16238754 (Version 1)
Quarter: 2019Q2

REPORT INFORMATION
  Report Type: Spontaneous
  Country: US (occurrence: US)
  Receive Date: 20190321
  Receipt Date: 20190321
  Transmission Date: 20190711
  Serious: No
  Sender: FDA-Public Use
  Company Number: None

PATIENT
  Age: 74 Year
  Sex: Female

DRUGS (1)
  1. REPATHA [Suspect]
     Active Substance: EVOLOCUMAB
     Indication: ARTERIOSCLEROSIS
     Route: 058
     Dates: start: 201901

REACTIONS (4)
  - Injection site pain [None]
  - Influenza like illness [None]
  - Lethargy [None]
  - Decreased appetite [None]

NARRATIVE: CASE EVENT DATE: 20190120
